FAERS Safety Report 10547928 (Version 2)
Quarter: 2014Q4

REPORT INFORMATION
  Report Type: Spontaneous
  Country: US (occurrence: US)
  Receive Date: 20141028
  Receipt Date: 20141111
  Transmission Date: 20150529
  Serious: No
  Sender: FDA-Public Use
  Company Number: US-PFIZER INC-2014292318

PATIENT
  Sex: Male

DRUGS (5)
  1. PILOCARPINE HCL [Suspect]
     Active Substance: PILOCARPINE HYDROCHLORIDE
  2. BLEPH-10 [Suspect]
     Active Substance: SULFACETAMIDE SODIUM
  3. OMEPRAZOLE. [Suspect]
     Active Substance: OMEPRAZOLE
     Dosage: UNK
  4. SULFASALAZINE. [Suspect]
     Active Substance: SULFASALAZINE
     Dosage: UNK
  5. SODIUM SULAMYD [Suspect]
     Active Substance: SULFACETAMIDE SODIUM

REACTIONS (1)
  - Drug hypersensitivity [Unknown]
